FAERS Safety Report 4786232-1 (Version None)
Quarter: 2005Q3

REPORT INFORMATION
  Report Type: 
  Country: None (occurrence: None)
  Receive Date: 20050926
  Receipt Date: 20041215
  Transmission Date: 20060218
  Serious: Yes (Hospitalization, Other)
  Sender: FDA-Public Use
  Company Number: 2004080970

PATIENT
  Sex: Female
  Weight: 63.5036 kg

DRUGS (2)
  1. NARDIL [Suspect]
     Indication: AGORAPHOBIA
     Dosage: 45 MG (15 MG, 3 IN 1 D) , ORAL
     Route: 048
  2. NARDIL [Suspect]
     Indication: SOCIAL PHOBIA
     Dosage: 45 MG (15 MG, 3 IN 1 D) , ORAL
     Route: 048

REACTIONS (5)
  - ANXIETY [None]
  - DEPRESSION [None]
  - DRUG INEFFECTIVE [None]
  - DRUG WITHDRAWAL SYNDROME [None]
  - PANIC ATTACK [None]
